FAERS Safety Report 19444393 (Version 3)
Quarter: 2021Q4

REPORT INFORMATION
  Report Type: Spontaneous
  Country: JP (occurrence: None)
  Receive Date: 20210621
  Receipt Date: 20211116
  Transmission Date: 20220303
  Serious: Yes (Death)
  Sender: FDA-Public Use
  Company Number: 2021A539721

PATIENT
  Age: 82 Year
  Sex: Female
  Weight: 52 kg

DRUGS (4)
  1. DAPAGLIFLOZIN [Suspect]
     Active Substance: DAPAGLIFLOZIN
     Indication: Cardiac failure
     Route: 048
     Dates: start: 20210515, end: 20210520
  2. TOFOGLIFLOZIN [Suspect]
     Active Substance: TOFOGLIFLOZIN
     Indication: Diabetes mellitus
     Route: 048
     Dates: end: 20210520
  3. INDAPAMIDE [Suspect]
     Active Substance: INDAPAMIDE
     Route: 048
     Dates: end: 20210520
  4. INSULIN NOS [Concomitant]
     Active Substance: INSULIN NOS
     Dosage: DOSE UNKNOWN
     Route: 042

REACTIONS (1)
  - Euglycaemic diabetic ketoacidosis [Fatal]

NARRATIVE: CASE EVENT DATE: 20210520
